FAERS Safety Report 5625672-5 (Version None)
Quarter: 2008Q1

REPORT INFORMATION
  Report Type: 
  Country: None (occurrence: None)
  Receive Date: 20080214
  Receipt Date: 20080204
  Transmission Date: 20080703
  Serious: Yes (Hospitalization, Disabling, Other)
  Sender: FDA-Public Use
  Company Number: US-JNJFOC-20080200709

PATIENT
  Age: 44 Year
  Sex: Male

DRUGS (18)
  1. PREZISTA [Suspect]
     Indication: HIV INFECTION
     Route: 048
  2. RISPERDAL [Suspect]
     Indication: DRUG USE FOR UNKNOWN INDICATION
     Route: 065
  3. NORVIR [Suspect]
     Indication: HIV INFECTION
     Route: 048
  4. MK-0518 [Suspect]
     Indication: HIV INFECTION
     Route: 048
  5. ANDROGEL [Concomitant]
     Route: 065
  6. COUMADIN [Concomitant]
     Route: 065
  7. SEPTRA DS [Concomitant]
     Route: 065
  8. CELEXA [Concomitant]
     Route: 065
  9. DIFLUCAN [Concomitant]
     Route: 065
  10. VALIUM [Concomitant]
     Route: 065
  11. ACYCLOVIR [Concomitant]
     Route: 065
  12. NEURONTIN [Concomitant]
     Route: 065
  13. VICODIN [Concomitant]
     Route: 065
  14. TRAZODONE HYDROCHLORIDE [Concomitant]
     Route: 065
  15. LUNESTA [Concomitant]
     Route: 065
  16. COGENTIN [Concomitant]
     Route: 065
  17. PREVACID [Concomitant]
     Route: 048
  18. LOMOTIL [Concomitant]
     Route: 065

REACTIONS (2)
  - GUILLAIN-BARRE SYNDROME [None]
  - PARKINSONISM [None]
